FAERS Safety Report 12489040 (Version 2)
Quarter: 2016Q2

REPORT INFORMATION
  Report Type: Spontaneous
  Country: GR (occurrence: GR)
  Receive Date: 20160622
  Receipt Date: 20160623
  Transmission Date: 20160815
  Serious: Yes (Other)
  Sender: FDA-Public Use
  Company Number: PHHY2016GR081642

PATIENT
  Age: 82 Year

DRUGS (2)
  1. EPLERENONE. [Suspect]
     Active Substance: EPLERENONE
     Indication: PRODUCT USED FOR UNKNOWN INDICATION
     Route: 065
  2. ENTRESTO [Suspect]
     Active Substance: SACUBITRIL\VALSARTAN
     Indication: CARDIAC FAILURE
     Route: 065

REACTIONS (3)
  - Renal impairment [Unknown]
  - Blood pressure abnormal [Unknown]
  - Hyperkalaemia [Unknown]
